FAERS Safety Report 8780724 (Version 1)
Quarter: 2012Q4

REPORT INFORMATION
  Report Type: 
  Country: US (occurrence: US)
  Receive Date: 20120913
  Receipt Date: 20120913
  Transmission Date: 20130627
  Serious: No
  Sender: FDA-Public Use
  Company Number: US-PFIZER INC-2012223118

PATIENT
  Age: 55 Year
  Sex: Female
  Weight: 62.59 kg

DRUGS (8)
  1. PRISTIQ [Suspect]
     Indication: ANTIDEPRESSANT THERAPY
     Dosage: 100 mg, 1x/day
     Route: 048
     Dates: end: 201208
  2. NEURONTIN [Suspect]
     Indication: BIPOLAR DISORDER
     Dosage: 300 mg, 3x/day
     Route: 048
     Dates: end: 20120907
  3. NEURONTIN [Suspect]
     Indication: PAIN
  4. EFFEXOR XR [Suspect]
     Indication: ANTIDEPRESSANT THERAPY
     Dosage: 75 mg, 1x/day
     Route: 048
     Dates: start: 201208
  5. MELOXICAM [Concomitant]
     Dosage: UNK
  6. LAMOTRIGINE [Concomitant]
     Dosage: UNK
  7. LOVASTATIN [Concomitant]
     Dosage: UNK
  8. HYDROCHLOROTHIAZIDE [Concomitant]
     Dosage: UNK

REACTIONS (6)
  - Vomiting [Recovering/Resolving]
  - Malaise [Recovering/Resolving]
  - Somnolence [Recovering/Resolving]
  - Pain [Recovering/Resolving]
  - Headache [Recovering/Resolving]
  - Off label use [Recovered/Resolved]
